FAERS Safety Report 16780955 (Version 3)
Quarter: 2020Q1

REPORT INFORMATION
  Report Type: Report from Study
  Country: US (occurrence: US)
  Receive Date: 20190906
  Receipt Date: 20200328
  Transmission Date: 20200409
  Serious: Yes (Hospitalization, Other)
  Sender: FDA-Public Use
  Company Number: US-UCBSA-2019037489

PATIENT
  Age: 66 Year
  Sex: Male
  Weight: 63 kg

DRUGS (4)
  1. LACOSAMIDE. [Suspect]
     Active Substance: LACOSAMIDE
     Indication: SEIZURE
     Dosage: 200 MILLIGRAM, 2X/DAY (BID)
     Dates: end: 20200318
  2. LACOSAMIDE. [Suspect]
     Active Substance: LACOSAMIDE
     Dosage: CUTTING TABLET INTO HALF
     Dates: start: 20200318
  3. CLOBAZAM. [Suspect]
     Active Substance: CLOBAZAM
     Indication: SEIZURE
     Dosage: 10 MILLIGRAM, 2X/DAY (BID)
  4. KEPPRA [Suspect]
     Active Substance: LEVETIRACETAM
     Indication: SEIZURE
     Dosage: 2000 MILLIGRAM, 2X/DAY (BID)

REACTIONS (5)
  - Off label use [Unknown]
  - Overdose [Unknown]
  - Seizure [Recovered/Resolved with Sequelae]
  - Loss of consciousness [Recovered/Resolved with Sequelae]
  - Wrong technique in product usage process [Unknown]

NARRATIVE: CASE EVENT DATE: 201907
